FAERS Safety Report 15589170 (Version 2)
Quarter: 2018Q4

REPORT INFORMATION
  Report Type: Spontaneous
  Country: CN (occurrence: CN)
  Receive Date: 20181106
  Receipt Date: 20181108
  Transmission Date: 20190205
  Serious: Yes (Other)
  Sender: FDA-Public Use
  Company Number: CN-ROCHE-2208496

PATIENT
  Age: 59 Year
  Sex: Female
  Weight: 46 kg

DRUGS (7)
  1. FLUOROURACIL. [Suspect]
     Active Substance: FLUOROURACIL
     Indication: ADENOCARCINOMA OF COLON
     Dosage: D1
     Route: 041
     Dates: start: 201804, end: 201808
  2. AVASTIN [Suspect]
     Active Substance: BEVACIZUMAB
     Indication: ADENOCARCINOMA OF COLON
     Dosage: D0
     Route: 042
     Dates: start: 201804, end: 201808
  3. XELODA [Suspect]
     Active Substance: CAPECITABINE
     Indication: ADENOCARCINOMA OF COLON
     Dosage: D1-14
     Route: 048
     Dates: start: 201504, end: 201508
  4. IRINOTECAN [Suspect]
     Active Substance: IRINOTECAN
     Indication: ADENOCARCINOMA OF COLON
     Dosage: D1
     Route: 042
     Dates: start: 201804, end: 201808
  5. FLUOROURACIL. [Suspect]
     Active Substance: FLUOROURACIL
     Dosage: 48H
     Route: 040
     Dates: start: 201804, end: 201808
  6. XELODA [Suspect]
     Active Substance: CAPECITABINE
     Dosage: D1-14
     Route: 048
     Dates: start: 201508, end: 201703
  7. OXALIPLATIN. [Suspect]
     Active Substance: OXALIPLATIN
     Indication: ADENOCARCINOMA OF COLON
     Dosage: D1
     Route: 042
     Dates: start: 201504, end: 201508

REACTIONS (3)
  - Bone marrow failure [Recovered/Resolved]
  - Gastrointestinal disorder [Not Recovered/Not Resolved]
  - Gastrointestinal disorder [Recovered/Resolved]

NARRATIVE: CASE EVENT DATE: 2018
